FAERS Safety Report 8195386-9 (Version None)
Quarter: 2012Q1

REPORT INFORMATION
  Report Type: 
  Country: None (occurrence: None)
  Receive Date: 20120308
  Receipt Date: 20120227
  Transmission Date: 20120608
  Serious: Yes (Hospitalization)
  Sender: FDA-Public Use
  Company Number: DE-GLAXOSMITHKLINE-B0786445A

PATIENT
  Sex: Female
  Weight: 54 kg

DRUGS (5)
  1. PACLITAXEL [Suspect]
     Indication: BREAST CANCER
     Dosage: 128MG WEEKLY
     Route: 042
     Dates: start: 20120224
  2. LAPATINIB [Suspect]
     Indication: BREAST CANCER
     Dosage: 750MG PER DAY
     Route: 048
     Dates: start: 20120224
  3. CARBOPLATIN [Suspect]
     Indication: BREAST CANCER
     Dosage: 298MG WEEKLY
     Route: 042
     Dates: start: 20120224
  4. DOXORUBICIN HCL [Suspect]
     Indication: BREAST CANCER
     Dosage: 32MG WEEKLY
     Route: 042
     Dates: start: 20120224
  5. TRASTUZUMAB [Suspect]
     Indication: BREAST CANCER
     Dosage: 432MG CYCLIC
     Route: 042
     Dates: start: 20120223

REACTIONS (1)
  - CARDIOVASCULAR DISORDER [None]
